FAERS Safety Report 11191129 (Version 1)
Quarter: 2015Q2

REPORT INFORMATION
  Report Type: Spontaneous
  Country: CA (occurrence: CA)
  Receive Date: 20150615
  Receipt Date: 20150615
  Transmission Date: 20150821
  Serious: Yes (Other)
  Sender: FDA-Public Use
  Company Number: CA-ALLERGAN-1510874US

PATIENT
  Age: 5 Year

DRUGS (3)
  1. METHOTREXATE [Concomitant]
     Active Substance: METHOTREXATE
     Indication: UVEITIS
     Dosage: 15 MG, Q WEEK
     Route: 061
  2. OZURDEX [Suspect]
     Active Substance: DEXAMETHASONE
     Indication: CYSTOID MACULAR OEDEMA
     Dosage: 0.7 MG, SINGLE
     Route: 031
  3. METHOTREXATE [Concomitant]
     Active Substance: METHOTREXATE
     Dosage: 25 MG, Q WEEK
     Route: 061

REACTIONS (4)
  - Intraocular pressure increased [Unknown]
  - Lenticular opacities [Unknown]
  - Off label use [Unknown]
  - Visual acuity reduced [Unknown]
